APPROVED DRUG PRODUCT: PROMACTA KIT
Active Ingredient: ELTROMBOPAG OLAMINE
Strength: EQ 25MG ACID/PACKET
Dosage Form/Route: FOR SUSPENSION;ORAL
Application: N207027 | Product #001 | TE Code: AB
Applicant: NOVARTIS PHARMACEUTICALS CORP
Approved: Aug 24, 2015 | RLD: Yes | RS: Yes | Type: RX

PATENTS:
Patent 7547719 | Expires: Jul 13, 2025
Patent 7547719 | Expires: Jul 13, 2025
Patent 7547719 | Expires: Jul 13, 2025
Patent 7547719 | Expires: Jul 13, 2025
Patent 7547719*PED | Expires: Jan 13, 2026